FAERS Safety Report 4363726-4 (Version None)
Quarter: 2004Q2

REPORT INFORMATION
  Report Type: 
  Country: None (occurrence: None)
  Receive Date: 20040521
  Receipt Date: 20040521
  Transmission Date: 20050107
  Serious: Yes (Life-Threatening, Hospitalization)
  Sender: FDA-Public Use
  Company Number: None

PATIENT
  Age: 70 Year
  Sex: Female
  Weight: 77.1115 kg

DRUGS (2)
  1. REMICADE [Suspect]
     Indication: IMMUNE SYSTEM DISORDER
     Dates: start: 20030920, end: 20040404
  2. REMICADE [Suspect]
     Indication: OXYGEN SATURATION DECREASED
     Dates: start: 20030920, end: 20040404

REACTIONS (4)
  - DYSPNOEA [None]
  - OXYGEN SATURATION DECREASED [None]
  - PLATELET COUNT DECREASED [None]
  - WHITE BLOOD CELL COUNT DECREASED [None]
